FAERS Safety Report 10691381 (Version 5)
Quarter: 2015Q2

REPORT INFORMATION
  Report Type: Spontaneous
  Country: JP (occurrence: JP)
  Receive Date: 20150105
  Receipt Date: 20150507
  Transmission Date: 20150821
  Serious: Yes (Death, Life-Threatening)
  Sender: FDA-Public Use
  Company Number: JP-UNITED THERAPEUTICS-UNT-2014-012869

PATIENT
  Age: 37 Year
  Sex: Female
  Weight: 37 kg

DRUGS (13)
  1. TRACLEER [Suspect]
     Active Substance: BOSENTAN\BOSENTAN MONOHYDRATE
     Indication: ATRIAL SEPTAL DEFECT
     Dosage: 62.5 MG, BID
     Route: 048
     Dates: start: 20050701, end: 20141225
  2. PROPOFOL. [Concomitant]
     Active Substance: PROPOFOL
     Indication: SEDATION
     Dosage: UNK
     Route: 041
     Dates: start: 20141203, end: 20141226
  3. DOPAMINE [Concomitant]
     Active Substance: DOPAMINE\DOPAMINE HYDROCHLORIDE
     Indication: ATRIAL SEPTAL DEFECT
     Dosage: UNK
     Route: 041
     Dates: start: 20141203, end: 20141226
  4. REMODULIN [Suspect]
     Active Substance: TREPROSTINIL
     Indication: PULMONARY ARTERIAL HYPERTENSION
     Dosage: 0.1146 ?G/KG, CONTINUING
     Route: 041
     Dates: start: 20141203, end: 20141226
  5. REMODULIN [Suspect]
     Active Substance: TREPROSTINIL
     Indication: ATRIAL SEPTAL DEFECT
  6. ADCIRCA [Suspect]
     Active Substance: TADALAFIL
     Indication: PULMONARY ARTERIAL HYPERTENSION
  7. NAOTAMIN [Suspect]
     Active Substance: NAFAMOSTAT
     Indication: ATRIAL SEPTAL DEFECT
     Dosage: UNK
     Route: 041
     Dates: start: 20141203, end: 20141226
  8. EPOPROSTENOL [Suspect]
     Active Substance: EPOPROSTENOL
     Indication: PRODUCT USED FOR UNKNOWN INDICATION
  9. TRACLEER [Suspect]
     Active Substance: BOSENTAN\BOSENTAN MONOHYDRATE
     Indication: PULMONARY ARTERIAL HYPERTENSION
  10. ADCIRCA [Suspect]
     Active Substance: TADALAFIL
     Indication: ATRIAL SEPTAL DEFECT
     Dosage: 20 MG, BID
     Route: 048
     Dates: start: 20100819, end: 20141225
  11. NAOTAMIN [Suspect]
     Active Substance: NAFAMOSTAT
     Indication: PULMONARY ARTERIAL HYPERTENSION
  12. SAMSCA [Concomitant]
     Active Substance: TOLVAPTAN
     Indication: ATRIAL SEPTAL DEFECT
     Dosage: 3.75 MG, UNK
     Route: 048
     Dates: start: 20141115, end: 20141209
  13. MIDAZOLAM [Concomitant]
     Active Substance: MIDAZOLAM\MIDAZOLAM HYDROCHLORIDE
     Indication: SEDATION
     Dosage: UNK
     Route: 041
     Dates: start: 20141203, end: 20141226

REACTIONS (4)
  - Condition aggravated [Fatal]
  - Haemoptysis [Fatal]
  - Pulmonary arterial hypertension [Fatal]
  - Platelet count decreased [Not Recovered/Not Resolved]

NARRATIVE: CASE EVENT DATE: 20141203
